FAERS Safety Report 25056621 (Version 1)
Quarter: 2025Q1

REPORT INFORMATION
  Report Type: Spontaneous
  Country: CA (occurrence: CA)
  Receive Date: 20250310
  Receipt Date: 20250310
  Transmission Date: 20250409
  Serious: Yes (Other)
  Sender: CELLTRION
  Company Number: CA-PFIZER INC-202500049587

PATIENT

DRUGS (8)
  1. INFLECTRA [Suspect]
     Active Substance: INFLIXIMAB-DYYB
     Indication: Ankylosing spondylitis
     Route: 042
     Dates: start: 20200810
  2. INFLECTRA [Suspect]
     Active Substance: INFLIXIMAB-DYYB
     Route: 042
     Dates: start: 20250109
  3. MORPHINE SULFATE [Concomitant]
     Active Substance: MORPHINE SULFATE
  4. VOLTAREN [Concomitant]
     Active Substance: DICLOFENAC SODIUM
  5. INDOMETHACIN [Concomitant]
     Active Substance: INDOMETHACIN
  6. NAPROXEN [Concomitant]
     Active Substance: NAPROXEN
  7. VALACYCLOVIR [Concomitant]
     Active Substance: VALACYCLOVIR HYDROCHLORIDE
  8. BUPROPION [Concomitant]
     Active Substance: BUPROPION

REACTIONS (1)
  - Neutrophil count decreased [Unknown]
